FAERS Safety Report 6421651-9 (Version None)
Quarter: 2009Q4

REPORT INFORMATION
  Report Type: 
  Country: None (occurrence: None)
  Receive Date: 20091029
  Receipt Date: 20091029
  Transmission Date: 20100525
  Serious: No
  Sender: FDA-Public Use
  Company Number: None

PATIENT
  Age: 49 Year
  Sex: Female
  Weight: 68.0396 kg

DRUGS (2)
  1. ARIMIDEX [Suspect]
     Indication: BREAST CANCER
     Dosage: 1 TABLET DAILY PO
     Route: 048
     Dates: start: 20070801
  2. ARIMIDEX [Suspect]
     Indication: OESTROGEN RECEPTOR ASSAY POSITIVE
     Dosage: 1 TABLET DAILY PO
     Route: 048
     Dates: start: 20070801

REACTIONS (1)
  - CARPAL TUNNEL SYNDROME [None]
